FAERS Safety Report 5681668-9 (Version None)
Quarter: 2008Q1

REPORT INFORMATION
  Report Type: 
  Country: None (occurrence: None)
  Receive Date: 20080326
  Receipt Date: 20070301
  Transmission Date: 20080703
  Serious: No
  Sender: FDA-Public Use
  Company Number: US-BAYER-US-2007-007504

PATIENT
  Age: 36 Year
  Sex: Female
  Weight: 102 kg

DRUGS (2)
  1. MIRENA [Suspect]
     Indication: CONTRACEPTION
     Route: 015
     Dates: start: 20061001, end: 20070225
  2. FLOVENT [Concomitant]
     Indication: ASTHMA
     Dosage: UNIT DOSE: 1 PUFF
     Route: 055

REACTIONS (1)
  - INTRA-UTERINE CONTRACEPTIVE DEVICE EXPELLED [None]
